FAERS Safety Report 6941280-8 (Version None)
Quarter: 2010Q3

REPORT INFORMATION
  Report Type: 
  Country: None (occurrence: None)
  Receive Date: 20100825
  Receipt Date: 20100817
  Transmission Date: 20110219
  Serious: Yes (Hospitalization)
  Sender: FDA-Public Use
  Company Number: ES-AMGEN-KDL432113

PATIENT
  Age: 78 Year
  Sex: Female

DRUGS (2)
  1. ARANESP [Suspect]
     Indication: ANAEMIA
     Dates: start: 20091101
  2. NOVOSEVEN [Concomitant]

REACTIONS (7)
  - AGITATION [None]
  - EPISTAXIS [None]
  - HAEMOGLOBIN DECREASED [None]
  - HAEMORRHAGE [None]
  - HOSPITALISATION [None]
  - NERVOUSNESS [None]
  - SURGERY [None]
